FAERS Safety Report 24553978 (Version 1)
Quarter: 2024Q4

REPORT INFORMATION
  Report Type: Report from Study
  Country: BG (occurrence: BG)
  Receive Date: 20241028
  Receipt Date: 20241028
  Transmission Date: 20250115
  Serious: Yes (Other)
  Sender: JOHNSON AND JOHNSON
  Company Number: BG-TEVA-VS-3253036

PATIENT
  Age: 47 Year
  Sex: Male

DRUGS (7)
  1. SIRTURO [Suspect]
     Active Substance: BEDAQUILINE FUMARATE
     Indication: Atypical mycobacterial infection
     Dosage: 100 MG  3 TIMES WEEKLY X 2 TAB
     Route: 048
  2. LEVOFLOXACIN [Suspect]
     Active Substance: LEVOFLOXACIN
     Indication: Atypical mycobacterial infection
     Route: 048
  3. CLARITHROMYCIN [Suspect]
     Active Substance: CLARITHROMYCIN
     Indication: Atypical mycobacterial infection
     Route: 048
  4. PROTIONAMIDE [Suspect]
     Active Substance: PROTIONAMIDE
     Indication: Atypical mycobacterial infection
     Route: 048
  5. CYCLOSERINE [Suspect]
     Active Substance: CYCLOSERINE
     Indication: Atypical mycobacterial infection
     Route: 048
  6. AMOXICILLIN\CLAVULANIC ACID [Suspect]
     Active Substance: AMOXICILLIN\CLAVULANIC ACID
     Indication: Atypical mycobacterial infection
     Dosage: 875/125 MG 2 X I TAB. DAILY
     Route: 048
  7. KANAMYCIN [Suspect]
     Active Substance: KANAMYCIN A SULFATE
     Indication: Atypical mycobacterial infection
     Dosage: VIAL 1.0  0,750 S.C. DAILY
     Route: 058

REACTIONS (1)
  - Immune reconstitution inflammatory syndrome [Recovered/Resolved]
